FAERS Safety Report 6575756-2 (Version None)
Quarter: 2010Q1

REPORT INFORMATION
  Report Type: 
  Country: None (occurrence: None)
  Receive Date: 20100209
  Receipt Date: 20100128
  Transmission Date: 20100710
  Serious: Yes (Other)
  Sender: FDA-Public Use
  Company Number: MY-PFIZER INC-2010008745

PATIENT
  Age: 52 Year
  Sex: Male

DRUGS (3)
  1. CHAMPIX [Suspect]
     Indication: SMOKING CESSATION THERAPY
     Dosage: 1.0 MG, 2X/DAY
     Route: 048
     Dates: start: 20091130, end: 20091224
  2. INSULIN [Concomitant]
     Indication: DIABETES MELLITUS
     Dosage: INSULIN S (16 U TDS)
  3. INSULIN [Concomitant]
     Dosage: INSULIN R (6 U ON)

REACTIONS (2)
  - DIZZINESS [None]
  - FALL [None]
